FAERS Safety Report 23762673 (Version 1)
Quarter: 2024Q2

REPORT INFORMATION
  Report Type: Spontaneous
  Country: US (occurrence: US)
  Receive Date: 20240419
  Receipt Date: 20240419
  Transmission Date: 20240716
  Serious: No
  Sender: FDA-Public Use
  Company Number: US-PHATHOM PHARMACEUTICALS INC.-2024PHT00054

PATIENT
  Sex: Female

DRUGS (8)
  1. VOQUEZNA [Suspect]
     Active Substance: VONOPRAZAN FUMARATE
     Indication: Oesophageal ulcer
     Dosage: 20 MG
     Dates: start: 20231213, end: 20240206
  2. ARMOUR THYROID [Concomitant]
     Active Substance: THYROID, PORCINE
  3. MILK THISTLE [SILYBUM MARIANUM SEED] [Concomitant]
  4. ACTIVE ESSENTIALS CALCIUM CHEWS [Concomitant]
  5. FAMOTIDINE [Concomitant]
     Active Substance: FAMOTIDINE
  6. CENTRUM ADULT 50+ VITAMIN [Concomitant]
  7. TUMS [Concomitant]
     Active Substance: CALCIUM CARBONATE
     Dosage: UNK, AS NEEDED
  8. MYLANTA ORIGINAL [Concomitant]
     Dosage: UNK, AS NEEDED

REACTIONS (3)
  - Hyperhidrosis [Unknown]
  - Dry mouth [Unknown]
  - Diarrhoea [Unknown]
